FAERS Safety Report 8987295 (Version 1)
Quarter: 2012Q4

REPORT INFORMATION
  Report Type: 
  Country: CN (occurrence: CN)
  Receive Date: 20121226
  Receipt Date: 20121226
  Transmission Date: 20130627
  Serious: Yes (Hospitalization)
  Sender: FDA-Public Use
  Company Number: CN-BAYER-2012-133618

PATIENT
  Age: 80 Year
  Sex: Female
  Weight: 47.5 kg

DRUGS (1)
  1. BAYASPIRIN [Suspect]
     Indication: HYPERTENSION
     Dosage: 1 DF, QD
     Route: 048
     Dates: start: 20100307, end: 20100307

REACTIONS (2)
  - Hypoglycaemia [Recovered/Resolved]
  - Coma [Recovered/Resolved]
